FAERS Safety Report 18273719 (Version 1)
Quarter: 2020Q3

REPORT INFORMATION
  Report Type: Report from Study
  Country: BR (occurrence: BR)
  Receive Date: 20200916
  Receipt Date: 20200916
  Transmission Date: 20201103
  Serious: Yes (Other)
  Sender: FDA-Public Use
  Company Number: BR-SHIRE-BR201928100

PATIENT

DRUGS (4)
  1. HEMO?8R [Suspect]
     Active Substance: ANTIHEMOPHILIC FACTOR, HUMAN RECOMBINANT
     Dosage: (MONDAY TO SATURDAY)
     Route: 050
  2. FEIBA NF [Suspect]
     Active Substance: ANTI-INHIBITOR COAGULANT COMPLEX
     Indication: PROPHYLAXIS
     Dosage: 6000 INTERNATIONAL UNIT, 3X A WEEK
     Route: 042
     Dates: start: 20190101
  3. HEMO?8R [Suspect]
     Active Substance: ANTIHEMOPHILIC FACTOR, HUMAN RECOMBINANT
     Indication: PROPHYLAXIS
     Dosage: 3X A WEEK (MONDAYS, WEDNESDAYS AND FRIDAYS
     Route: 050
  4. HEMO?8R [Suspect]
     Active Substance: ANTIHEMOPHILIC FACTOR, HUMAN RECOMBINANT
     Dosage: 7500 INTERNATIONAL UNIT, UNKNOWN
     Route: 050

REACTIONS (1)
  - Anti factor VIII antibody increased [Recovering/Resolving]
